FAERS Safety Report 21260406 (Version 1)
Quarter: 2022Q3

REPORT INFORMATION
  Report Type: Report from Study
  Country: US (occurrence: US)
  Receive Date: 20220826
  Receipt Date: 20220826
  Transmission Date: 20221026
  Serious: Yes (Other)
  Sender: FDA-Public Use
  Company Number: US-BRISTOL-MYERS SQUIBB COMPANY-2022-053567

PATIENT
  Age: 60 Year
  Sex: Female
  Weight: 58.97 kg

DRUGS (1)
  1. REVLIMID [Suspect]
     Active Substance: LENALIDOMIDE
     Indication: Plasma cell myeloma
     Dosage: EXP DT: 30-SEP-2024
     Route: 048
     Dates: start: 20210224

REACTIONS (2)
  - Bone density abnormal [Unknown]
  - Nasopharyngitis [Unknown]
